FAERS Safety Report 7985770-8 (Version None)
Quarter: 2011Q4

REPORT INFORMATION
  Report Type: 
  Country: None (occurrence: None)
  Receive Date: 20111214
  Receipt Date: 20111206
  Transmission Date: 20120403
  Serious: Yes (Hospitalization)
  Sender: FDA-Public Use
  Company Number: 2011SP057048

PATIENT
  Age: 47 Year
  Sex: Male
  Weight: 62 kg

DRUGS (2)
  1. PEG-INTRON [Suspect]
     Indication: HEPATITIS C
     Dosage: 80 MCG, QW, SBDE
     Route: 059
     Dates: start: 20110614
  2. RIBAVIRIN [Suspect]
     Indication: HEPATITIS C
     Dosage: 300 MG, TID, PO
     Route: 048
     Dates: start: 20110501, end: 20111205

REACTIONS (6)
  - RED BLOOD CELL COUNT DECREASED [None]
  - WHITE BLOOD CELL COUNT DECREASED [None]
  - FATIGUE [None]
  - DECREASED APPETITE [None]
  - PLATELET COUNT DECREASED [None]
  - YELLOW SKIN [None]
